FAERS Safety Report 20023527 (Version 5)
Quarter: 2021Q4

REPORT INFORMATION
  Report Type: Spontaneous
  Country: CZ (occurrence: CZ)
  Receive Date: 20211102
  Receipt Date: 20211118
  Transmission Date: 20220303
  Serious: Yes (Other)
  Sender: FDA-Public Use
  Company Number: CZ-NOVARTISPH-NVSC2021CZ246480

PATIENT
  Age: 57 Year
  Sex: Male

DRUGS (12)
  1. RYDAPT [Suspect]
     Active Substance: MIDOSTAURIN
     Indication: Acute myeloid leukaemia
     Dosage: UNK
     Route: 065
  2. CYTARABINE [Suspect]
     Active Substance: CYTARABINE
     Indication: Acute myeloid leukaemia
     Dosage: 200 MG/M2, QD (CONT INFUSION, 24 H, DAY 1-7, AS INDUCTION CHEMOTHERAPY)
     Route: 041
  3. CYTARABINE [Suspect]
     Active Substance: CYTARABINE
     Dosage: 1 G/M2, Q12H (DAY 1-4, AS CONSOLIDATION 1 CHEMOTHERAPY)
     Route: 065
  4. CYTARABINE [Suspect]
     Active Substance: CYTARABINE
     Dosage: (1 G/M2 EVERY 12 H DAY 1-4 AS CONSOLIDATION 2 CHEMOTHERAPY)
     Route: 065
  5. CYTARABINE [Suspect]
     Active Substance: CYTARABINE
     Dosage: 1.5 G / M2 EVERY 12 HOURS,DAY 1, 3, 5
     Route: 065
  6. MYLOTARG [Suspect]
     Active Substance: GEMTUZUMAB OZOGAMICIN
     Indication: Acute myeloid leukaemia
     Dosage: 3 MG/M2, UNKNOWN, 1 DOSE MAX. 5 MG DAY 1, 4, 7, INDUCTION PHASE
     Route: 065
  7. MYLOTARG [Suspect]
     Active Substance: GEMTUZUMAB OZOGAMICIN
     Dosage: 3 MG/M2, UNKNOWN, PER DOSE, 1 DOSE MAX. 5 MG ON DAY 1 AS CONSOLIDATION 1 CHEMOTHERAPY
     Route: 065
  8. MYLOTARG [Suspect]
     Active Substance: GEMTUZUMAB OZOGAMICIN
     Dosage: 3 MG/M2, UNKNOWN, PER DOSE, 1 DOSE MAX. 5 MG ON DAY 1 AS CONSOLIDATION 2 CHEMOTHERAPY
     Route: 065
  9. DAUNORUBICIN [Suspect]
     Active Substance: DAUNORUBICIN
     Indication: Acute myeloid leukaemia
     Dosage: 60 MG/M2, QD (DAY 1-3 AS INDUCTION CHEMOTHERAPY)
     Route: 065
  10. DAUNORUBICIN [Suspect]
     Active Substance: DAUNORUBICIN
     Dosage: 60 MG/M2, QD (DAY 1
     Route: 065
  11. DAUNORUBICIN [Suspect]
     Active Substance: DAUNORUBICIN
     Dosage: 60 MG/M2, QD (DAY 1-2 AS)
     Route: 065
  12. DAUNORUBICIN [Suspect]
     Active Substance: DAUNORUBICIN
     Dosage: P1:60 MG/M2/D,D1,P2: 60 MG/M2/D/DAY1-2
     Route: 065

REACTIONS (2)
  - Pneumonia [Unknown]
  - Myelosuppression [Recovered/Resolved]
